FAERS Safety Report 9304276 (Version 2)
Quarter: 2013Q4

REPORT INFORMATION
  Report Type: Spontaneous
  Country: GB (occurrence: GB)
  Receive Date: 20130522
  Receipt Date: 20131121
  Transmission Date: 20140711
  Serious: Yes (Hospitalization)
  Sender: FDA-Public Use
  Company Number: GB-MYLANLABS-2013S1010329

PATIENT
  Age: 73 Year
  Sex: Male

DRUGS (6)
  1. ATENOLOL [Suspect]
     Indication: PRODUCT USED FOR UNKNOWN INDICATION
     Route: 048
     Dates: start: 20020327
  2. ATENOLOL [Suspect]
     Indication: PRODUCT USED FOR UNKNOWN INDICATION
     Route: 048
     Dates: end: 20020327
  3. ASPIRIN [Concomitant]
     Indication: RETINAL ARTERY OCCLUSION
     Route: 048
  4. ATORVASTATIN [Concomitant]
     Indication: BLOOD CHOLESTEROL INCREASED
     Route: 048
     Dates: start: 20020227
  5. BENDROFLUAZIDE [Concomitant]
     Indication: HYPERTENSION
     Route: 048
  6. IRBESARTAN [Concomitant]
     Indication: NEPHROSCLEROSIS
     Route: 048
     Dates: start: 20020227

REACTIONS (2)
  - Bradycardia [Recovering/Resolving]
  - Circulatory collapse [Recovering/Resolving]
